FAERS Safety Report 8933626 (Version 1)
Quarter: 2012Q4

REPORT INFORMATION
  Report Type: 
  Country: AU (occurrence: AU)
  Receive Date: 20121129
  Receipt Date: 20121129
  Transmission Date: 20130627
  Serious: Yes (Other)
  Sender: FDA-Public Use
  Company Number: AU-NAPPMUNDI-USA-2012-0096270

PATIENT
  Age: 52 Year
  Sex: Female

DRUGS (6)
  1. OXYCODONE HCL IMMEDIATE RELEASE (91-490) [Suspect]
     Dosage: 5 mg, single
     Dates: start: 20110129
  2. CEPHALEXIN                         /00145501/ [Concomitant]
  3. METRONIDAZOLE [Concomitant]
  4. PANTOPRAZOLE [Concomitant]
  5. PARACETAMOL [Concomitant]
  6. SERETIDE [Concomitant]

REACTIONS (4)
  - Hypokinesia [Recovered/Resolved]
  - Stupor [Recovered/Resolved]
  - Pain [Recovered/Resolved]
  - Drug ineffective [Recovered/Resolved]
